FAERS Safety Report 15764943 (Version 4)
Quarter: 2020Q2

REPORT INFORMATION
  Report Type: Spontaneous
  Country: US (occurrence: US)
  Receive Date: 20181227
  Receipt Date: 20200521
  Transmission Date: 20200713
  Serious: Yes (Hospitalization, Other)
  Sender: FDA-Public Use
  Company Number: US-SA-2018SA390308

PATIENT
  Age: 43 Year
  Sex: Male
  Weight: 122.45 kg

DRUGS (3)
  1. ALPROLIX [Suspect]
     Active Substance: EFTRENONACOG ALFA
     Indication: HAEMOPHILIA
     Dosage: 12000 IU, QW
     Route: 042
     Dates: start: 2014
  2. ALPROLIX [Suspect]
     Active Substance: EFTRENONACOG ALFA
     Dosage: 13000 IU
     Route: 042
     Dates: start: 20181204
  3. ALPROLIX [Suspect]
     Active Substance: EFTRENONACOG ALFA
     Dosage: 12000 IU, QW
     Route: 042

REACTIONS (12)
  - Peripheral swelling [Not Recovered/Not Resolved]
  - Pain [Not Recovered/Not Resolved]
  - Pain in extremity [Not Recovered/Not Resolved]
  - Fall [Recovered/Resolved]
  - Haemarthrosis [Unknown]
  - Device related thrombosis [Unknown]
  - Gait disturbance [Unknown]
  - Vascular device infection [Recovered/Resolved]
  - Exostosis [Not Recovered/Not Resolved]
  - Angiopathy [Unknown]
  - Ligament sprain [Not Recovered/Not Resolved]
  - Head injury [Unknown]

NARRATIVE: CASE EVENT DATE: 201809
